FAERS Safety Report 23752346 (Version 1)
Quarter: 2024Q2

REPORT INFORMATION
  Report Type: Spontaneous
  Country: FR (occurrence: FR)
  Receive Date: 20240417
  Receipt Date: 20240417
  Transmission Date: 20240716
  Serious: Yes (Other)
  Sender: FDA-Public Use
  Company Number: FR-ORGANON-O2402FRA000702

PATIENT
  Sex: Female
  Weight: 53 kg

DRUGS (1)
  1. NEXPLANON [Suspect]
     Active Substance: ETONOGESTREL
     Dosage: 1 IMPLANT (LEFT ARM)
     Route: 059
     Dates: start: 20230504, end: 20240229

REACTIONS (2)
  - Hysterectomy [Unknown]
  - Device breakage [Recovered/Resolved]
